FAERS Safety Report 9922335 (Version 3)
Quarter: 2014Q1

REPORT INFORMATION
  Report Type: Spontaneous
  Country: JP (occurrence: JP)
  Receive Date: 20140225
  Receipt Date: 20140306
  Transmission Date: 20141002
  Serious: Yes (Hospitalization)
  Sender: FDA-Public Use
  Company Number: PHHY2014JP018719

PATIENT
  Age: 27 Year
  Sex: Female

DRUGS (9)
  1. CLOZARIL [Suspect]
     Indication: SCHIZOPHRENIA
     Route: 048
  2. CLOZARIL [Suspect]
     Dosage: 75 MG, UNK
     Route: 048
  3. CLOZARIL [Suspect]
     Dosage: 275 MG, UNK
     Route: 048
  4. CLOZARIL [Suspect]
     Dosage: 200 MG, UNK
     Route: 048
  5. RISPERIDONE [Suspect]
     Dosage: 4 MG, UNK
  6. QUETIAPINE [Suspect]
  7. ARIPIPRAZOLE [Suspect]
     Dosage: 30 MG, UNK
  8. PALIPERIDONE [Suspect]
  9. BIPERIDEN [Concomitant]
     Indication: TARDIVE DYSKINESIA

REACTIONS (8)
  - Dystonia [Recovering/Resolving]
  - Tardive dyskinesia [Unknown]
  - Hypertonia [Unknown]
  - Dyskinesia [Recovering/Resolving]
  - Extrapyramidal disorder [Not Recovered/Not Resolved]
  - Psychiatric symptom [Unknown]
  - Gait disturbance [Recovering/Resolving]
  - Drug ineffective [Unknown]
